FAERS Safety Report 10229183 (Version 1)
Quarter: 2014Q2

REPORT INFORMATION
  Report Type: Spontaneous
  Country: GB (occurrence: GB)
  Receive Date: 20140611
  Receipt Date: 20140611
  Transmission Date: 20141212
  Serious: Yes (Other)
  Sender: FDA-Public Use
  Company Number: GB-DRREDDYS-GER/UKI/14/0040967

PATIENT
  Age: 63 Year
  Sex: Male
  Weight: 97 kg

DRUGS (5)
  1. AMLODIPINE [Suspect]
     Indication: PRODUCT USED FOR UNKNOWN INDICATION
  2. BENDROFLUMETHIAZIDE [Suspect]
     Indication: PRODUCT USED FOR UNKNOWN INDICATION
  3. SIMVASTATIN [Interacting]
     Indication: HYPERCHOLESTEROLAEMIA
     Route: 048
     Dates: start: 20030101, end: 20130808
  4. CANDESARTAN CILEXETIL [Concomitant]
     Indication: PRODUCT USED FOR UNKNOWN INDICATION
  5. TAMSULOSIN HYDROCHLORIDE [Concomitant]
     Indication: PRODUCT USED FOR UNKNOWN INDICATION

REACTIONS (11)
  - Joint swelling [Recovered/Resolved]
  - Arthritis [Recovered/Resolved]
  - Drug prescribing error [Unknown]
  - Drug interaction [Unknown]
  - Pain in extremity [Recovered/Resolved]
  - Myalgia [Recovered/Resolved]
  - Arthralgia [Recovered/Resolved]
  - Musculoskeletal stiffness [Recovered/Resolved]
  - Peripheral swelling [Recovered/Resolved]
  - Micturition urgency [Recovered/Resolved]
  - Pollakiuria [Recovered/Resolved]
